FAERS Safety Report 7578438-3 (Version None)
Quarter: 2011Q2

REPORT INFORMATION
  Report Type: 
  Country: None (occurrence: None)
  Receive Date: 20110628
  Receipt Date: 20110622
  Transmission Date: 20111010
  Serious: Yes (Death, Hospitalization)
  Sender: FDA-Public Use
  Company Number: US-SANOFI-AVENTIS-2011SA040122

PATIENT
  Age: 72 Year
  Sex: Female

DRUGS (2)
  1. PLAVIX [Suspect]
     Route: 065
     Dates: end: 20110601
  2. ASPIRIN [Concomitant]
     Dates: end: 20110601

REACTIONS (3)
  - FALL [None]
  - HEAD INJURY [None]
  - LOSS OF CONSCIOUSNESS [None]
